FAERS Safety Report 19997346 (Version 1)
Quarter: 2021Q4

REPORT INFORMATION
  Report Type: Spontaneous
  Country: FR (occurrence: FR)
  Receive Date: 20211025
  Receipt Date: 20211025
  Transmission Date: 20220303
  Serious: Yes (Other)
  Sender: FDA-Public Use
  Company Number: FR-CELLTRION INC.-2021FR014330

PATIENT

DRUGS (5)
  1. RITUXIMAB [Suspect]
     Active Substance: RITUXIMAB
     Indication: Rheumatoid arthritis
     Dosage: SINGLE INFUSION
     Route: 041
     Dates: start: 20201223
  2. RITUXIMAB [Suspect]
     Active Substance: RITUXIMAB
     Dosage: 2 X 1000MG INFUSIONS
     Route: 041
  3. RITUXIMAB [Suspect]
     Active Substance: RITUXIMAB
     Dosage: 6 MONTH
     Route: 041
     Dates: start: 2013
  4. MODERNA COVID-19 VACCINE [Concomitant]
     Active Substance: CX-024414
     Dosage: UNK
     Dates: start: 20210226
  5. MODERNA COVID-19 VACCINE [Concomitant]
     Active Substance: CX-024414
     Dosage: UNK
     Dates: start: 20210129

REACTIONS (2)
  - COVID-19 [Recovered/Resolved]
  - Vaccination failure [Recovered/Resolved]
